FAERS Safety Report 11497966 (Version 1)
Quarter: 2015Q3

REPORT INFORMATION
  Report Type: Report from Study
  Country: US (occurrence: US)
  Receive Date: 20150911
  Receipt Date: 20150911
  Transmission Date: 20151125
  Serious: No
  Sender: FDA-Public Use
  Company Number: PHEH2015US015660

PATIENT
  Age: 52 Year
  Sex: Female
  Weight: 73.92 kg

DRUGS (4)
  1. MVI                                /01825701/ [Concomitant]
     Active Substance: VITAMINS
     Indication: PRODUCT USED FOR UNKNOWN INDICATION
     Route: 065
  2. GILENYA [Suspect]
     Active Substance: FINGOLIMOD HYDROCHLORIDE
     Indication: RELAPSING-REMITTING MULTIPLE SCLEROSIS
     Dosage: 0.5 MG, QD
     Route: 048
     Dates: start: 20140925
  3. AMPYRA [Suspect]
     Active Substance: DALFAMPRIDINE
     Indication: PRODUCT USED FOR UNKNOWN INDICATION
     Dosage: UNK
     Route: 065
  4. AMPYRA [Suspect]
     Active Substance: DALFAMPRIDINE
     Dosage: UNK
     Route: 065
     Dates: start: 20150127

REACTIONS (18)
  - Restless legs syndrome [Unknown]
  - Pollakiuria [Unknown]
  - Muscular weakness [Unknown]
  - Gait disturbance [Unknown]
  - Joint hyperextension [Unknown]
  - Contusion [Unknown]
  - Temperature intolerance [Unknown]
  - Memory impairment [Unknown]
  - Back pain [Unknown]
  - Hypoaesthesia [Unknown]
  - Fatigue [Unknown]
  - Dry skin [Unknown]
  - Balance disorder [Recovering/Resolving]
  - Malaise [Unknown]
  - Seasonal allergy [Unknown]
  - Multiple sclerosis [Unknown]
  - Peroneal nerve palsy [Unknown]
  - Dizziness [Unknown]

NARRATIVE: CASE EVENT DATE: 20150127
